FAERS Safety Report 21138484 (Version 1)
Quarter: 2022Q3

REPORT INFORMATION
  Report Type: Spontaneous
  Country: IT (occurrence: None)
  Receive Date: 20220727
  Receipt Date: 20220727
  Transmission Date: 20221027
  Serious: Yes (Other)
  Sender: FDA-Public Use
  Company Number: IT-ROCHE-3147090

PATIENT
  Sex: Male

DRUGS (1)
  1. ESBRIET [Suspect]
     Active Substance: PIRFENIDONE
     Indication: Idiopathic pulmonary fibrosis
     Dosage: 2,403 MG/DAY
     Route: 065

REACTIONS (3)
  - Retinal fibrosis [Unknown]
  - Dyspepsia [Unknown]
  - Decreased appetite [Unknown]
